FAERS Safety Report 5493964-9 (Version None)
Quarter: 2007Q4

REPORT INFORMATION
  Report Type: 
  Country: None (occurrence: None)
  Receive Date: 20071023
  Receipt Date: 20071015
  Transmission Date: 20080405
  Serious: Yes (Hospitalization)
  Sender: FDA-Public Use
  Company Number: ES-PFIZER INC-2007085563

PATIENT
  Age: 78 Year
  Sex: Female

DRUGS (5)
  1. LYRICA [Suspect]
     Indication: PAIN
     Route: 048
     Dates: start: 20070614, end: 20070623
  2. LORMETAZEPAM [Interacting]
     Route: 048
  3. TRANXILIUM [Interacting]
     Route: 048
  4. IRBESARTAN [Concomitant]
     Indication: RENOVASCULAR HYPERTENSION
     Route: 048
  5. AMLODIPINE [Concomitant]
     Indication: RENOVASCULAR HYPERTENSION
     Route: 048

REACTIONS (2)
  - CONFUSIONAL STATE [None]
  - DRUG INTERACTION [None]
